FAERS Safety Report 7642369-0 (Version None)
Quarter: 2011Q3

REPORT INFORMATION
  Report Type: 
  Country: None (occurrence: None)
  Receive Date: 20110728
  Receipt Date: 20110722
  Transmission Date: 20111222
  Serious: Yes (Hospitalization, Other)
  Sender: FDA-Public Use
  Company Number: US-ABBOTT-11P-163-0841370-00

PATIENT
  Age: 26 Year
  Sex: Female

DRUGS (5)
  1. EPTIFIBATIDE [Concomitant]
     Indication: PRODUCT USED FOR UNKNOWN INDICATION
     Route: 042
  2. RITONAVIR [Suspect]
     Indication: HIV INFECTION
  3. CLOPIDOGREL [Concomitant]
     Indication: PRODUCT USED FOR UNKNOWN INDICATION
     Dosage: LOADING DOSE 600 MG
  4. EMTRICITABINE W/TENOFOVIR [Suspect]
     Indication: HIV INFECTION
  5. ATAZANAVIR [Suspect]
     Indication: HIV INFECTION

REACTIONS (2)
  - ACUTE MYOCARDIAL INFARCTION [None]
  - ARTERIAL THROMBOSIS [None]
